FAERS Safety Report 21796104 (Version 1)
Quarter: 2022Q4

REPORT INFORMATION
  Report Type: Spontaneous
  Country: US (occurrence: US)
  Receive Date: 20221229
  Receipt Date: 20221229
  Transmission Date: 20230112
  Serious: Yes (Hospitalization)
  Sender: FDA-Public Use
  Company Number: US-FreseniusKabi-FK202218295

PATIENT
  Age: 41 Year
  Sex: Male

DRUGS (4)
  1. LACTULOSE [Suspect]
     Active Substance: LACTULOSE
     Indication: Constipation prophylaxis
     Dosage: ONGOING
  2. CALCIUM CHLORIDE\DEXTROSE\MAGNESIUM CHLORIDE\SODIUM CHLORIDE\SODIUM LA [Suspect]
     Active Substance: CALCIUM CHLORIDE\DEXTROSE\MAGNESIUM CHLORIDE\SODIUM CHLORIDE\SODIUM LACTATE
     Indication: End stage renal disease
     Dosage: IP VIA MANUAL?ONGOING
     Route: 033
     Dates: start: 20210220
  3. COLACE [Suspect]
     Active Substance: DOCUSATE SODIUM
     Indication: Constipation prophylaxis
     Dosage: STOP DATE : ONGOING
     Dates: end: 202212
  4. COLACE [Suspect]
     Active Substance: DOCUSATE SODIUM
     Dosage: INCREASED DUE TO CONSTIPATION
     Dates: start: 202212

REACTIONS (1)
  - Escherichia peritonitis [Recovering/Resolving]

NARRATIVE: CASE EVENT DATE: 20221211
